FAERS Safety Report 6046812-2 (Version None)
Quarter: 2009Q1

REPORT INFORMATION
  Report Type: 
  Country: None (occurrence: None)
  Receive Date: 20090122
  Receipt Date: 20090119
  Transmission Date: 20090719
  Serious: Yes (Death)
  Sender: FDA-Public Use
  Company Number: A0763951A

PATIENT
  Age: 73 Year
  Sex: Male

DRUGS (13)
  1. COREG [Suspect]
     Indication: HYPERTENSION
     Dosage: 1TAB PER DAY
     Route: 048
  2. RYTHMOL [Suspect]
     Indication: ARRHYTHMIA
     Dosage: 1TAB TWICE PER DAY
     Route: 048
  3. ATENOLOL [Concomitant]
  4. HUMULIN N [Concomitant]
  5. HUMULIN R [Concomitant]
  6. PLAVIX [Concomitant]
  7. LEVOTHYROXINE SODIUM [Concomitant]
  8. QUINAPRIL [Concomitant]
  9. IMDUR [Concomitant]
  10. SERTRALINE [Concomitant]
  11. LORAZEPAM [Concomitant]
  12. SIMVASTATIN [Concomitant]
  13. METFORMIN [Concomitant]

REACTIONS (4)
  - ARRHYTHMIA [None]
  - CARDIOVERSION [None]
  - FALL [None]
  - PULMONARY EMBOLISM [None]
